FAERS Safety Report 16840420 (Version 1)
Quarter: 2019Q3

REPORT INFORMATION
  Report Type: Spontaneous
  Country: US (occurrence: US)
  Receive Date: 20190923
  Receipt Date: 20190923
  Transmission Date: 20191005
  Serious: Yes (Life-Threatening, Hospitalization)
  Sender: FDA-Public Use
  Company Number: US-MYLANLABS-2019M1088563

PATIENT
  Sex: Female
  Weight: 27 kg

DRUGS (2)
  1. METFORMIN [Suspect]
     Active Substance: METFORMIN HYDROCHLORIDE
     Indication: WEIGHT CONTROL
     Dosage: UNK
     Route: 065
  2. LEVOTHYROXINE. [Concomitant]
     Active Substance: LEVOTHYROXINE
     Indication: HYPOTHYROIDISM
     Dosage: UNK
     Route: 065

REACTIONS (7)
  - Lactic acidosis [Recovering/Resolving]
  - Anuria [Recovering/Resolving]
  - Intentional product misuse [Recovering/Resolving]
  - Mental status changes [Recovering/Resolving]
  - Product use in unapproved indication [Recovering/Resolving]
  - Toxicity to various agents [Recovering/Resolving]
  - Prescription drug used without a prescription [Recovering/Resolving]
